FAERS Safety Report 8640101 (Version 3)
Quarter: 2014Q2

REPORT INFORMATION
  Report Type: Report from Study
  Country: US (occurrence: US)
  Receive Date: 20120628
  Receipt Date: 20140626
  Transmission Date: 20141212
  Serious: Yes (Other)
  Sender: FDA-Public Use
  Company Number: US-MYLANLABS-2011S1023146

PATIENT
  Age: 18 Year
  Sex: Female

DRUGS (4)
  1. CLOZAPINE TABLETS [Suspect]
     Route: 048
     Dates: start: 20110428, end: 20111214
  2. CLOZAPINE TABLETS [Suspect]
     Route: 048
     Dates: start: 20111215, end: 20120510
  3. TOPIRAMATE [Concomitant]
     Route: 048
  4. SEROQUEL [Concomitant]
     Route: 048

REACTIONS (1)
  - Granulocytopenia [Not Recovered/Not Resolved]
